FAERS Safety Report 8925228 (Version 1)
Quarter: 2012Q4

REPORT INFORMATION
  Report Type: 
  Country: US (occurrence: US)
  Receive Date: 20121126
  Receipt Date: 20121126
  Transmission Date: 20130627
  Serious: Yes (Hospitalization)
  Sender: FDA-Public Use
  Company Number: US-BAYER-2012-120673

PATIENT
  Age: 45 Year
  Sex: Female
  Weight: 59.1 kg

DRUGS (14)
  1. YAZ [Suspect]
  2. GIANVI [Suspect]
  3. NADOLOL [Concomitant]
  4. TRAMADOL [Concomitant]
  5. NITROFURANTOIN [Concomitant]
  6. LORTAB [Concomitant]
  7. HYDROCHLOROTHIAZID [Concomitant]
  8. SINGULAIR [Concomitant]
  9. SIMVASTATIN [Concomitant]
  10. ZETIA [Concomitant]
  11. OTHER CHOLESTEROL AND TRIGLYCERIDE REDUCERS [Concomitant]
  12. LANTUS [Concomitant]
  13. HUMALOG [Concomitant]
  14. MACROBID [Concomitant]

REACTIONS (1)
  - Cerebrovascular accident [None]
